FAERS Safety Report 6459141-X (Version None)
Quarter: 2009Q4

REPORT INFORMATION
  Report Type: 
  Country: None (occurrence: None)
  Receive Date: 20091125
  Receipt Date: 20091125
  Transmission Date: 20100525
  Serious: No
  Sender: FDA-Public Use
  Company Number: None

PATIENT
  Age: 61 Year
  Sex: Female

DRUGS (3)
  1. TUBERSOL [Suspect]
     Indication: TUBERCULIN TEST
     Dosage: I.D.
     Dates: start: 20081104
  2. TUBERSOL [Suspect]
     Indication: TUBERCULIN TEST
     Dosage: I.D.
     Dates: start: 20081111
  3. THYROID REPLACEMENT MEDICATION [Concomitant]

REACTIONS (6)
  - ASTHENIA [None]
  - FEELING COLD [None]
  - INJECTION SITE DISCOLOURATION [None]
  - PAIN [None]
  - PARAESTHESIA [None]
  - SWELLING [None]
